FAERS Safety Report 4704294-4 (Version None)
Quarter: 2005Q2

REPORT INFORMATION
  Report Type: 
  Country: None (occurrence: None)
  Receive Date: 20050630
  Receipt Date: 20050620
  Transmission Date: 20051028
  Serious: Yes (Other)
  Sender: FDA-Public Use
  Company Number: 2005UW09346

PATIENT
  Age: 68 Year
  Sex: Male
  Weight: 94.8 kg

DRUGS (14)
  1. NEXIUM [Suspect]
     Indication: GASTROOESOPHAGEAL REFLUX DISEASE
     Route: 048
     Dates: start: 20031101, end: 20041101
  2. NEXIUM [Suspect]
     Route: 048
     Dates: start: 20050501
  3. METOPROLOL [Concomitant]
  4. ACCUPRIL [Concomitant]
  5. AMIODARONE HCL [Concomitant]
  6. ATACAND [Concomitant]
  7. DOXAZOSIN [Concomitant]
  8. MAGNESIUM [Concomitant]
  9. UROCIT-K [Concomitant]
  10. WARFARIN [Concomitant]
  11. GLUCOSAMINE [Concomitant]
  12. FISH OIL [Concomitant]
  13. ZINC [Concomitant]
  14. MULTI-VITAMIN [Concomitant]

REACTIONS (2)
  - ATRIAL FIBRILLATION [None]
  - THERAPEUTIC RESPONSE UNEXPECTED [None]
